FAERS Safety Report 5775250-2 (Version None)
Quarter: 2008Q2

REPORT INFORMATION
  Report Type: 
  Country: None (occurrence: None)
  Receive Date: 20080617
  Receipt Date: 20080605
  Transmission Date: 20081010
  Serious: Yes (Other)
  Sender: FDA-Public Use
  Company Number: JP-ASTRAZENECA-2008AP04530

PATIENT
  Age: 20 Year
  Sex: Male

DRUGS (2)
  1. SEROQUEL [Suspect]
     Route: 048
     Dates: start: 20080401
  2. ANAFRANIL [Concomitant]

REACTIONS (2)
  - HYPERVENTILATION [None]
  - NAUSEA [None]
